FAERS Safety Report 16996542 (Version 1)
Quarter: 2019Q4

REPORT INFORMATION
  Report Type: Spontaneous
  Country: GB (occurrence: GB)
  Receive Date: 20191106
  Receipt Date: 20191106
  Transmission Date: 20200122
  Serious: Yes (Disabling, Other)
  Sender: FDA-Public Use
  Company Number: GB-ADVANZ PHARMA-201910001433

PATIENT

DRUGS (7)
  1. PREDNISOLONE. [Suspect]
     Active Substance: PREDNISOLONE
     Dosage: EACH MORNING, TABLET
     Dates: start: 20190919, end: 20190926
  2. HYDROXOCOBALAMIN [Concomitant]
     Active Substance: HYDROXOCOBALAMIN
     Dosage: 6 INJECTIONS OVER 2 WEEKS
     Dates: start: 20191011
  3. FOSTAIR [Concomitant]
     Active Substance: BECLOMETHASONE\FORMOTEROL
     Dosage: 4 DOSAGE FORM, QD, PUFFS
     Dates: start: 20190919
  4. SALBUTAMOL [Concomitant]
     Active Substance: ALBUTEROL
     Dosage: 1 TO 2 PUFFS
     Dates: start: 20190515
  5. AMITRIPTYLINE HYDROCHLORIDE. [Concomitant]
     Active Substance: AMITRIPTYLINE HYDROCHLORIDE
     Dosage: AT NIGHT BEFORE BED
     Dates: start: 20190717
  6. FLUTICASONE. [Concomitant]
     Active Substance: FLUTICASONE
     Dosage: PUFFS
     Route: 055
     Dates: start: 20190515, end: 20190919
  7. PREGABALIN. [Concomitant]
     Active Substance: PREGABALIN
     Dosage: 2 DOSAGE FORM, QD
     Dates: start: 20190515

REACTIONS (1)
  - Trigeminal neuralgia [Recovering/Resolving]
